FAERS Safety Report 4462502-1 (Version None)
Quarter: 2004Q3

REPORT INFORMATION
  Report Type: 
  Country: None (occurrence: None)
  Receive Date: 20040924
  Receipt Date: 20040910
  Transmission Date: 20050211
  Serious: Yes (Life-Threatening, Hospitalization)
  Sender: FDA-Public Use
  Company Number: 2004AP04731

PATIENT
  Age: 65 Year
  Sex: Female

DRUGS (23)
  1. IRESSA [Suspect]
     Indication: LUNG ADENOCARCINOMA
     Dosage: 250 MG DAILY PO
     Route: 048
     Dates: start: 20040812, end: 20040907
  2. IRESSA [Suspect]
     Indication: NON-SMALL CELL LUNG CANCER
     Dosage: 250 MG DAILY PO
     Route: 048
     Dates: start: 20040812, end: 20040907
  3. LASIX [Concomitant]
  4. TANATRIL :ALGOL: [Concomitant]
  5. FLUITRAN [Concomitant]
  6. MAGNESIUM OXIDE [Concomitant]
  7. CRAVIT [Concomitant]
  8. NAUZELIN [Concomitant]
  9. NOVAMIN [Concomitant]
  10. MALFA [Concomitant]
  11. TAKEPRON [Concomitant]
  12. NAIXAN [Concomitant]
  13. CODEINE PHOSPHATE [Concomitant]
  14. SERENE [Concomitant]
  15. SAXIZON [Concomitant]
  16. VASOLAN [Concomitant]
  17. THERODRIP [Concomitant]
  18. PRIMPERAN INJ [Concomitant]
  19. NASEA [Concomitant]
  20. CARBOPLATIN [Concomitant]
  21. DOCETAXEL [Concomitant]
  22. IRINOTECAN [Concomitant]
  23. GEMCITABINE [Concomitant]

REACTIONS (17)
  - ATELECTASIS [None]
  - BODY TEMPERATURE DECREASED [None]
  - COUGH [None]
  - DIARRHOEA [None]
  - DYSPNOEA [None]
  - FATIGUE [None]
  - GENERAL PHYSICAL HEALTH DETERIORATION [None]
  - MALIGNANT NEOPLASM PROGRESSION [None]
  - NAUSEA [None]
  - NON-SMALL CELL LUNG CANCER [None]
  - OBSTRUCTIVE AIRWAYS DISORDER [None]
  - PLEURAL EFFUSION [None]
  - PYREXIA [None]
  - RENAL FAILURE ACUTE [None]
  - RESPIRATORY FAILURE [None]
  - SHOCK [None]
  - WHEEZING [None]
